FAERS Safety Report 20593075 (Version 1)
Quarter: 2022Q1

REPORT INFORMATION
  Report Type: Spontaneous
  Country: US (occurrence: None)
  Receive Date: 20220315
  Receipt Date: 20220315
  Transmission Date: 20220423
  Serious: No
  Sender: FDA-Public Use
  Company Number: US-ROCHE-2792674

PATIENT
  Age: 18 Year
  Sex: Female

DRUGS (8)
  1. XOLAIR [Suspect]
     Active Substance: OMALIZUMAB
     Indication: Product used for unknown indication
     Route: 065
  2. DUPIXENT [Suspect]
     Active Substance: DUPILUMAB
     Indication: Dermatitis atopic
     Dosage: 600 MG ONCE FOLLOWED BY MAINTENANCE DOSE OF 300 MG EVERY OTHER WEEK
     Route: 058
  3. DUPIXENT [Suspect]
     Active Substance: DUPILUMAB
     Indication: Eczema
     Dosage: 600 MG ONCE FOLLOWED BY MAINTENANCE DOSE OF 300 MG EVERY OTHER WEEK
     Route: 058
  4. ADVIL [Concomitant]
     Active Substance: IBUPROFEN
  5. AMOXICILLIN SODIUM [Concomitant]
     Active Substance: AMOXICILLIN SODIUM
  6. CLAVULANIC ACID [Concomitant]
     Active Substance: CLAVULANIC ACID
  7. PREDNISONE [Concomitant]
     Active Substance: PREDNISONE
  8. FLUOCINOLONE ACETONIDE [Concomitant]
     Active Substance: FLUOCINOLONE ACETONIDE

REACTIONS (1)
  - Urticaria [Unknown]

NARRATIVE: CASE EVENT DATE: 20200501
